FAERS Safety Report 7532118-9 (Version None)
Quarter: 2011Q2

REPORT INFORMATION
  Report Type: 
  Country: None (occurrence: None)
  Receive Date: 20110601
  Receipt Date: 20110516
  Transmission Date: 20111010
  Serious: Yes (Hospitalization, Other)
  Sender: FDA-Public Use
  Company Number: ACO_24038_2011

PATIENT
  Age: 65 Year
  Sex: Male

DRUGS (8)
  1. PERCOCET [Concomitant]
  2. AMPYRA [Suspect]
     Indication: PRODUCT USED FOR UNKNOWN INDICATION
     Route: 058
     Dates: start: 20110201, end: 20110201
  3. COLACE (DOCUSATE SODIUM) [Concomitant]
  4. LISINOPRIL/HCTZ (HYDROCHLOROTHIAZIDE, LISINOPRIL) [Concomitant]
  5. ASPIRIN [Concomitant]
  6. ROBAXIN [Concomitant]
  7. FLUOXETINE [Concomitant]
  8. REBIF [Suspect]
     Indication: PRODUCT USED FOR UNKNOWN INDICATION
     Dosage: 44UG, 3 IN 1 WK, SUBCUTANEOUS
     Dates: start: 20080725

REACTIONS (16)
  - BALANCE DISORDER [None]
  - INCOHERENT [None]
  - PUPILLARY REFLEX IMPAIRED [None]
  - GRAND MAL CONVULSION [None]
  - MUSCULOSKELETAL STIFFNESS [None]
  - FEELING ABNORMAL [None]
  - TREMOR [None]
  - ANAEMIA [None]
  - DISCOMFORT [None]
  - UNRESPONSIVE TO STIMULI [None]
  - DECREASED APPETITE [None]
  - DYSPHONIA [None]
  - OPTIC ATROPHY [None]
  - NAUSEA [None]
  - BLOOD CREATININE INCREASED [None]
  - VISUAL ACUITY REDUCED [None]
